FAERS Safety Report 12225497 (Version 1)
Quarter: 2016Q1

REPORT INFORMATION
  Report Type: Spontaneous
  Country: PL (occurrence: PL)
  Receive Date: 20160331
  Receipt Date: 20160331
  Transmission Date: 20160526
  Serious: Yes (Other)
  Sender: FDA-Public Use
  Company Number: PL-ASTRAZENECA-2016SE33052

PATIENT
  Sex: Female

DRUGS (6)
  1. LINEZOLID. [Concomitant]
     Active Substance: LINEZOLID
  2. MERONEM [Suspect]
     Active Substance: MEROPENEM
     Route: 042
  3. FLUCONAZOLE. [Concomitant]
     Active Substance: FLUCONAZOLE
  4. CEFTAZIDIME. [Concomitant]
     Active Substance: CEFTAZIDIME
  5. PIPERACILLIN/TAZOBACTAM [Concomitant]
     Active Substance: PIPERACILLIN SODIUM\TAZOBACTAM SODIUM
  6. MICAFUNGIN [Concomitant]
     Active Substance: MICAFUNGIN

REACTIONS (1)
  - Pathogen resistance [Recovered/Resolved]
